FAERS Safety Report 17556222 (Version 1)
Quarter: 2020Q1

REPORT INFORMATION
  Report Type: Spontaneous
  Country: US (occurrence: US)
  Receive Date: 20200318
  Receipt Date: 20200318
  Transmission Date: 20200409
  Serious: No
  Sender: FDA-Public Use
  Company Number: US-THERAPEUTICSMD-2020TMD00949

PATIENT
  Age: 51 Year
  Sex: Female
  Weight: 56.24 kg

DRUGS (7)
  1. IMVEXXY [Suspect]
     Active Substance: ESTRADIOL
     Indication: VULVOVAGINAL DISCOMFORT
  2. UNSPECIFIED PREVENTATIVE HEADACHE MEDICINE [Concomitant]
     Dosage: UNK, 1X/DAY
  3. TYLENOL [Concomitant]
     Active Substance: ACETAMINOPHEN
  4. TOPIRAMATE. [Concomitant]
     Active Substance: TOPIRAMATE
  5. IMVEXXY [Suspect]
     Active Substance: ESTRADIOL
     Indication: VULVOVAGINAL DRYNESS
     Dosage: 10 ?G, 1X/DAY, AT NIGHT
     Route: 067
     Dates: start: 20200204
  6. TRAZODONE [Concomitant]
     Active Substance: TRAZODONE HYDROCHLORIDE
  7. IBUPROFEN. [Concomitant]
     Active Substance: IBUPROFEN

REACTIONS (3)
  - Headache [Recovering/Resolving]
  - Weight increased [Recovering/Resolving]
  - Off label use [Not Recovered/Not Resolved]

NARRATIVE: CASE EVENT DATE: 202002
